FAERS Safety Report 5873364-X (Version None)
Quarter: 2008Q3

REPORT INFORMATION
  Report Type: 
  Country: None (occurrence: None)
  Receive Date: 20080829
  Receipt Date: 20070927
  Transmission Date: 20090109
  Serious: Yes (Hospitalization)
  Sender: FDA-Public Use
  Company Number: 2007-00905FE

PATIENT
  Age: 45 Year
  Sex: Female

DRUGS (5)
  1. MENOPUR [Suspect]
     Indication: INFERTILITY
     Dosage: 150 IU
     Dates: start: 20051001, end: 20051201
  2. CLOMID [Suspect]
     Indication: INFERTILITY
     Dosage: PO
     Route: 048
     Dates: start: 19940101, end: 19950101
  3. CLOMID [Suspect]
     Indication: INFERTILITY
     Dosage: PO
     Route: 048
     Dates: start: 20021101, end: 20030301
  4. CLOMID [Suspect]
     Indication: INFERTILITY
     Dosage: PO
     Route: 048
     Dates: start: 20051001, end: 20051201
  5. PUREGON (PUREGON /01348901/) (FOLLITROPIN BETA) [Suspect]
     Indication: INFERTILITY
     Dosage: 75 IU
     Dates: start: 20031001, end: 20040201

REACTIONS (1)
  - BREAST CANCER FEMALE [None]
